FAERS Safety Report 6192189-1 (Version None)
Quarter: 2009Q2

REPORT INFORMATION
  Report Type: 
  Country: None (occurrence: None)
  Receive Date: 20090515
  Receipt Date: 20090507
  Transmission Date: 20091009
  Serious: Yes (Hospitalization)
  Sender: FDA-Public Use
  Company Number: HU-ELI_LILLY_AND_COMPANY-HU200905001697

PATIENT
  Age: 81 Year
  Sex: Female

DRUGS (3)
  1. HUMULIN R [Suspect]
     Indication: DIABETES MELLITUS
     Dosage: 28 IU, DAILY (1/D)
     Route: 058
  2. HUMULIN N [Suspect]
     Indication: DIABETES MELLITUS
     Dosage: 24 IU, DAILY (1/D)
     Route: 058
  3. CARDIAC THERAPY [Concomitant]

REACTIONS (5)
  - ARTERIOSCLEROSIS [None]
  - GASTROINTESTINAL DISORDER [None]
  - GLOSSODYNIA [None]
  - INTESTINAL FUNCTIONAL DISORDER [None]
  - LEG AMPUTATION [None]
